FAERS Safety Report 19074151 (Version 1)
Quarter: 2021Q1

REPORT INFORMATION
  Report Type: Spontaneous
  Country: FR (occurrence: FR)
  Receive Date: 20210330
  Receipt Date: 20210330
  Transmission Date: 20210420
  Serious: Yes (Hospitalization)
  Sender: FDA-Public Use
  Company Number: FR-ASTRAZENECA-2021A178591

PATIENT
  Age: 75 Year
  Sex: Female
  Weight: 70 kg

DRUGS (9)
  1. TERCIAN [Suspect]
     Active Substance: CYAMEMAZINE
     Indication: BIPOLAR I DISORDER
     Route: 048
  2. IMOVANE [Suspect]
     Active Substance: ZOPICLONE
     Indication: BIPOLAR I DISORDER
     Route: 048
     Dates: end: 202101
  3. LYSANXIA [Suspect]
     Active Substance: PRAZEPAM
     Indication: BIPOLAR I DISORDER
     Route: 048
     Dates: end: 202101
  4. LEXOMIL [Suspect]
     Active Substance: BROMAZEPAM
     Indication: BIPOLAR I DISORDER
     Route: 048
     Dates: end: 202101
  5. DEROXAT [Suspect]
     Active Substance: PAROXETINE HYDROCHLORIDE
     Indication: BIPOLAR I DISORDER
     Route: 048
  6. XEROQUEL LP [Suspect]
     Active Substance: QUETIAPINE FUMARATE
     Indication: BIPOLAR I DISORDER
     Route: 048
     Dates: end: 202101
  7. ATARAX [Suspect]
     Active Substance: HYDROXYZINE HYDROCHLORIDE
     Indication: BIPOLAR I DISORDER
     Route: 048
     Dates: end: 202101
  8. MIANSERINE (CHLORHYDRATE DE) [Suspect]
     Active Substance: MIANSERIN HYDROCHLORIDE
     Indication: BIPOLAR I DISORDER
     Route: 048
     Dates: end: 202101
  9. THERALENE [Suspect]
     Active Substance: TRIMEPRAZINE
     Indication: BIPOLAR I DISORDER
     Route: 048
     Dates: end: 202101

REACTIONS (2)
  - Acute respiratory failure [Recovering/Resolving]
  - Respiratory acidosis [Recovering/Resolving]

NARRATIVE: CASE EVENT DATE: 20210116
